FAERS Safety Report 10994814 (Version 1)
Quarter: 2015Q2

REPORT INFORMATION
  Report Type: Spontaneous
  Country: US (occurrence: US)
  Receive Date: 20150407
  Receipt Date: 20150407
  Transmission Date: 20150821
  Serious: Yes (Other)
  Sender: FDA-Public Use
  Company Number: US-TEVA-552231USA

PATIENT
  Sex: Male

DRUGS (1)
  1. CLARAVIS [Suspect]
     Active Substance: ISOTRETINOIN
     Route: 048
     Dates: start: 20140218, end: 20150119

REACTIONS (2)
  - Seizure [Unknown]
  - Eyelid disorder [Unknown]
